FAERS Safety Report 20963820 (Version 2)
Quarter: 2022Q3

REPORT INFORMATION
  Report Type: Spontaneous
  Country: US (occurrence: US)
  Receive Date: 20220615
  Receipt Date: 20220921
  Transmission Date: 20221026
  Serious: No
  Sender: FDA-Public Use
  Company Number: US-BRISTOL-MYERS SQUIBB COMPANY-2022-055521

PATIENT
  Age: 66 Year
  Sex: Male

DRUGS (2)
  1. REVLIMID [Suspect]
     Active Substance: LENALIDOMIDE
     Indication: Plasma cell myeloma
     Route: 048
     Dates: start: 202108, end: 202204
  2. REVLIMID [Suspect]
     Active Substance: LENALIDOMIDE
     Dosage: 15 MILLIGRAM, 1 EVERY 1 DAY FOR 14 DAYS ON THEN 7 DAYS OFF
     Route: 048

REACTIONS (6)
  - Insomnia [Unknown]
  - Dysgeusia [Unknown]
  - Diarrhoea [Unknown]
  - Intentional product use issue [Unknown]
  - Pain in extremity [Unknown]
  - Back pain [Unknown]
